FAERS Safety Report 8572923 (Version 2)
Quarter: 2013Q3

REPORT INFORMATION
  Report Type: Report from Study
  Country: MX (occurrence: MX)
  Receive Date: 20120522
  Receipt Date: 20130705
  Transmission Date: 20140515
  Serious: Yes (Other)
  Sender: FDA-Public Use
  Company Number: PHHY2012MX000516

PATIENT
  Age: 85 Year
  Sex: Male

DRUGS (3)
  1. GALVUS [Suspect]
     Dosage: 50 MG, UNK
     Route: 048
  2. EXFORGE [Suspect]
     Dosage: UNK UKN, UNK
  3. STALEVO [Suspect]
     Indication: PARKINSON^S DISEASE
     Dosage: 3 DF, (200/100/25 MG) DAILY
     Route: 048

REACTIONS (5)
  - Fall [Not Recovered/Not Resolved]
  - Gait disturbance [Not Recovered/Not Resolved]
  - Fatigue [Not Recovered/Not Resolved]
  - Headache [Not Recovered/Not Resolved]
  - Dizziness [Not Recovered/Not Resolved]
